FAERS Safety Report 16729374 (Version 1)
Quarter: 2019Q3

REPORT INFORMATION
  Report Type: Report from Study
  Country: CA (occurrence: CA)
  Receive Date: 20190822
  Receipt Date: 20190822
  Transmission Date: 20191005
  Serious: Yes (Other)
  Sender: FDA-Public Use
  Company Number: CA-PFIZER INC-2019358238

PATIENT
  Age: 60 Year
  Sex: Female

DRUGS (8)
  1. ERGOCALCIFEROL. [Concomitant]
     Active Substance: ERGOCALCIFEROL
     Dosage: UNK
     Route: 065
  2. LABETALOL [Concomitant]
     Active Substance: LABETALOL\LABETALOL HYDROCHLORIDE
     Dosage: UNK
     Route: 065
  3. AFINITOR [Suspect]
     Active Substance: EVEROLIMUS
     Indication: BREAST CANCER
     Dosage: 10 MG, 1X/DAY
     Route: 048
  4. AFINITOR [Suspect]
     Active Substance: EVEROLIMUS
     Dosage: 5 MG, 1X/DAY
     Route: 065
  5. ZANTAC [Concomitant]
     Active Substance: RANITIDINE HYDROCHLORIDE
     Dosage: UNK
     Route: 065
  6. AVAPRO [Concomitant]
     Active Substance: IRBESARTAN
     Dosage: UNK
     Route: 065
  7. EXEMESTANE. [Suspect]
     Active Substance: EXEMESTANE
     Dosage: UNK
     Route: 065
  8. CALCIUM [Concomitant]
     Active Substance: CALCIUM
     Dosage: UNK
     Route: 065

REACTIONS (34)
  - Facial pain [Recovering/Resolving]
  - Malaise [Recovering/Resolving]
  - Platelet count decreased [Recovering/Resolving]
  - Toothache [Recovering/Resolving]
  - Asthenia [Recovering/Resolving]
  - Chills [Recovering/Resolving]
  - Dry mouth [Recovering/Resolving]
  - Epistaxis [Recovering/Resolving]
  - Hyperhidrosis [Recovering/Resolving]
  - Musculoskeletal pain [Recovering/Resolving]
  - Peripheral swelling [Recovering/Resolving]
  - Poor quality sleep [Recovering/Resolving]
  - Rash [Recovering/Resolving]
  - Fatigue [Recovering/Resolving]
  - Glossodynia [Recovering/Resolving]
  - Noninfective gingivitis [Recovering/Resolving]
  - Oral pain [Recovering/Resolving]
  - Blood pressure decreased [Recovering/Resolving]
  - Pain in extremity [Recovering/Resolving]
  - Speech disorder [Recovering/Resolving]
  - Acne [Recovering/Resolving]
  - Constipation [Recovering/Resolving]
  - Syncope [Recovering/Resolving]
  - Cheilitis [Recovering/Resolving]
  - Feeding disorder [Recovering/Resolving]
  - Lip pain [Recovering/Resolving]
  - White blood cell count increased [Recovering/Resolving]
  - Nasal dryness [Recovering/Resolving]
  - Stress [Recovering/Resolving]
  - Arthralgia [Recovering/Resolving]
  - Headache [Recovering/Resolving]
  - Mood altered [Recovering/Resolving]
  - Pruritus [Recovering/Resolving]
  - Stomatitis [Recovering/Resolving]
